FAERS Safety Report 6380507-0 (Version None)
Quarter: 2009Q3

REPORT INFORMATION
  Report Type: 
  Country: None (occurrence: None)
  Receive Date: 20090923
  Receipt Date: 20090914
  Transmission Date: 20100115
  Serious: Yes (Hospitalization)
  Sender: FDA-Public Use
  Company Number: 1-19932658

PATIENT
  Age: 18 Year
  Sex: Male

DRUGS (1)
  1. MINOCYCLINE (MANUFACTURER NOT REPORTED) [Suspect]
     Indication: ACNE
     Dosage: 100 MG DAILY, ORAL
     Route: 048

REACTIONS (16)
  - ARTHRALGIA [None]
  - AUTOIMMUNE HEPATITIS [None]
  - BLOOD ALBUMIN INCREASED [None]
  - FEBRILE NEUTROPENIA [None]
  - HAEMOGLOBIN DECREASED [None]
  - HEADACHE [None]
  - INFLUENZA LIKE ILLNESS [None]
  - LETHARGY [None]
  - LUPUS-LIKE SYNDROME [None]
  - LYMPHOCYTE COUNT DECREASED [None]
  - NAUSEA [None]
  - OROPHARYNGEAL PAIN [None]
  - PROTEIN TOTAL INCREASED [None]
  - RED BLOOD CELL SEDIMENTATION RATE INCREASED [None]
  - WEIGHT DECREASED [None]
  - WHITE BLOOD CELL COUNT DECREASED [None]
